FAERS Safety Report 7644289-4 (Version None)
Quarter: 2011Q3

REPORT INFORMATION
  Report Type: 
  Country: None (occurrence: None)
  Receive Date: 20110728
  Receipt Date: 20110728
  Transmission Date: 20111222
  Serious: No
  Sender: FDA-Public Use
  Company Number: None

PATIENT
  Sex: Female

DRUGS (1)
  1. ADDERALL 5 [Suspect]
     Dates: start: 20110401

REACTIONS (2)
  - PSYCHOTIC DISORDER [None]
  - HALLUCINATION, AUDITORY [None]
